FAERS Safety Report 4870150-4 (Version None)
Quarter: 2005Q4

REPORT INFORMATION
  Report Type: 
  Country: None (occurrence: None)
  Receive Date: 20051229
  Receipt Date: 20051229
  Transmission Date: 20060501
  Serious: No
  Sender: FDA-Public Use
  Company Number: None

PATIENT
  Age: 22 Year
  Sex: Male
  Weight: 82 kg

DRUGS (1)
  1. DANTRIUM [Suspect]
     Dosage: 100 MG   BID   PO
     Route: 048
     Dates: start: 20050829, end: 20050916

REACTIONS (1)
  - HEPATITIS A [None]
